APPROVED DRUG PRODUCT: VENLAFAXINE HYDROCHLORIDE
Active Ingredient: VENLAFAXINE HYDROCHLORIDE
Strength: EQ 75MG BASE
Dosage Form/Route: CAPSULE, EXTENDED RELEASE;ORAL
Application: A200430 | Product #002
Applicant: NOSTRUM PHARMACEUTICALS LLC
Approved: Apr 4, 2023 | RLD: No | RS: No | Type: DISCN